FAERS Safety Report 19372886 (Version 1)
Quarter: 2021Q2

REPORT INFORMATION
  Report Type: Spontaneous
  Country: US (occurrence: US)
  Receive Date: 20210603
  Receipt Date: 20210603
  Transmission Date: 20210717
  Serious: Yes (Life-Threatening, Hospitalization)
  Sender: FDA-Public Use
  Company Number: US-MYLANLABS-2021M1032067

PATIENT
  Age: 11 Year
  Sex: Male

DRUGS (1)
  1. IBUPROFEN. [Suspect]
     Active Substance: IBUPROFEN
     Indication: PRODUCT USED FOR UNKNOWN INDICATION
     Dosage: 400 DOSAGE FORM, QD
     Route: 048

REACTIONS (8)
  - Mental disorder [Recovering/Resolving]
  - Hypotension [Recovering/Resolving]
  - Pneumonia aspiration [Recovering/Resolving]
  - Vomiting [Recovering/Resolving]
  - Depressed level of consciousness [Recovering/Resolving]
  - Overdose [Recovering/Resolving]
  - Pulmonary oedema [Recovering/Resolving]
  - Acidosis [Recovering/Resolving]
